FAERS Safety Report 9970897 (Version 3)
Quarter: 2014Q2

REPORT INFORMATION
  Report Type: Spontaneous
  Country: JP (occurrence: JP)
  Receive Date: 20140306
  Receipt Date: 20140409
  Transmission Date: 20141212
  Serious: Yes (Other)
  Sender: FDA-Public Use
  Company Number: JP-009507513-1403JPN000956

PATIENT
  Age: 36 Year
  Sex: Female

DRUGS (2)
  1. FAMOTIDINE [Suspect]
     Indication: MYASTHENIA GRAVIS
     Dosage: UNK
     Route: 048
     Dates: start: 201207, end: 2012
  2. PREDNISOLONE [Concomitant]
     Indication: MYASTHENIA GRAVIS
     Dosage: UNK
     Route: 048
     Dates: start: 201207

REACTIONS (1)
  - Fanconi syndrome [Recovered/Resolved]
